FAERS Safety Report 4720239-5 (Version None)
Quarter: 2005Q3

REPORT INFORMATION
  Report Type: 
  Country: None (occurrence: None)
  Receive Date: 20050721
  Receipt Date: 20050714
  Transmission Date: 20060218
  Serious: Yes (Hospitalization)
  Sender: FDA-Public Use
  Company Number: JP-JNJFOC-20050702420

PATIENT
  Age: 79 Year
  Sex: Male

DRUGS (3)
  1. TAVANIC [Suspect]
     Indication: PNEUMONIA
     Route: 042
     Dates: start: 20050603, end: 20050608
  2. TIMENTIN [Concomitant]
     Route: 042
     Dates: start: 20050603, end: 20050608
  3. TIMENTIN [Concomitant]
     Dosage: 15 G POWDER + SOLVENT FOR INJECTION.
     Route: 042
     Dates: start: 20050603, end: 20050608

REACTIONS (3)
  - ENCEPHALOPATHY [None]
  - MYOCLONUS [None]
  - OVERDOSE [None]
